FAERS Safety Report 9774375 (Version 1)
Quarter: 2013Q4

REPORT INFORMATION
  Report Type: Spontaneous
  Country: US (occurrence: US)
  Receive Date: 20131220
  Receipt Date: 20131220
  Transmission Date: 20140711
  Serious: Yes (Other)
  Sender: FDA-Public Use
  Company Number: US-SA-2013SA132460

PATIENT
  Sex: Male

DRUGS (6)
  1. LANTUS SOLOSTAR [Suspect]
     Indication: TYPE 2 DIABETES MELLITUS
     Dosage: DOSE: 34 U/ 40 U
     Route: 051
  2. LANTUS [Suspect]
     Route: 051
  3. PLAVIX [Suspect]
     Route: 065
  4. ASPIRIN [Suspect]
  5. ACTOS [Suspect]
     Route: 065
  6. SOLOSTAR [Concomitant]

REACTIONS (9)
  - Cerebrovascular accident [Recovered/Resolved]
  - Monoplegia [Recovered/Resolved]
  - Muscular weakness [Recovered/Resolved]
  - Transient ischaemic attack [Unknown]
  - Anaemia [Recovered/Resolved]
  - Renal disorder [Recovered/Resolved]
  - Bladder cancer [Unknown]
  - Weight decreased [Unknown]
  - Injection site bruising [Recovered/Resolved]
